FAERS Safety Report 13871670 (Version 1)
Quarter: 2017Q3

REPORT INFORMATION
  Report Type: Spontaneous
  Country: IL (occurrence: IL)
  Receive Date: 20170816
  Receipt Date: 20170816
  Transmission Date: 20171127
  Serious: Yes (Hospitalization, Other)
  Sender: FDA-Public Use
  Company Number: IL-MYLANLABS-2017M1049666

PATIENT

DRUGS (1)
  1. MINOCYCLINE [Suspect]
     Active Substance: MINOCYCLINE\MINOCYCLINE HYDROCHLORIDE
     Indication: PEMPHIGOID
     Dosage: 200 MG/DAY
     Route: 065

REACTIONS (2)
  - Chylothorax [Recovered/Resolved]
  - Lupus-like syndrome [Recovering/Resolving]
